FAERS Safety Report 4694793-6 (Version None)
Quarter: 2005Q2

REPORT INFORMATION
  Report Type: 
  Country: None (occurrence: None)
  Receive Date: 20050620
  Receipt Date: 20050222
  Transmission Date: 20051028
  Serious: Yes (Other)
  Sender: FDA-Public Use
  Company Number: 2005AP01329

PATIENT
  Age: 26146 Day
  Sex: Male

DRUGS (12)
  1. DIPRIVAN [Suspect]
     Indication: SEDATIVE THERAPY
     Route: 041
     Dates: start: 20050214, end: 20050215
  2. DIPRIVAN [Suspect]
     Route: 041
     Dates: start: 20050215, end: 20050218
  3. DIPRIVAN [Suspect]
     Route: 041
     Dates: start: 20050218, end: 20050219
  4. DIPRIVAN [Suspect]
     Route: 041
     Dates: start: 20050219, end: 20050221
  5. DIPRIVAN [Suspect]
     Route: 041
     Dates: start: 20050221, end: 20050221
  6. RINDERON [Concomitant]
     Indication: ACUTE RESPIRATORY DISTRESS SYNDROME
     Route: 042
     Dates: start: 20050214, end: 20050215
  7. ELASPOL [Concomitant]
     Indication: ACUTE RESPIRATORY DISTRESS SYNDROME
     Route: 042
     Dates: start: 20050214, end: 20050222
  8. INOVAN [Concomitant]
     Indication: SHOCK
     Route: 042
     Dates: start: 20050214, end: 20050222
  9. PASIL [Concomitant]
     Indication: PNEUMONIA
     Route: 042
     Dates: start: 20050214, end: 20050224
  10. MEROPEN [Concomitant]
     Indication: PNEUMONIA
     Route: 042
     Dates: start: 20050214, end: 20050224
  11. SOLU-CORTEF [Concomitant]
     Indication: ACUTE RESPIRATORY DISTRESS SYNDROME
     Route: 042
     Dates: start: 20050214, end: 20050225
  12. GASTER [Concomitant]
     Indication: GASTRIC ULCER
     Route: 042
     Dates: start: 20050214

REACTIONS (5)
  - COMA [None]
  - DEPRESSED LEVEL OF CONSCIOUSNESS [None]
  - HYPERKALAEMIA [None]
  - HYPOXIC ENCEPHALOPATHY [None]
  - METABOLIC DISORDER [None]
